FAERS Safety Report 15202471 (Version 2)
Quarter: 2018Q3

REPORT INFORMATION
  Report Type: Spontaneous
  Country: US (occurrence: US)
  Receive Date: 20180726
  Receipt Date: 20180806
  Transmission Date: 20181010
  Serious: Yes (Other)
  Sender: FDA-Public Use
  Company Number: US-SA-2017SA254987

PATIENT
  Age: 68 Year
  Sex: Female
  Weight: 111 kg

DRUGS (4)
  1. TRASTUZUMAB. [Concomitant]
     Active Substance: TRASTUZUMAB
  2. TAXOTERE [Suspect]
     Active Substance: DOCETAXEL
     Dosage: 155 MG,Q3W
     Route: 042
     Dates: start: 20120725, end: 20120725
  3. CARBOPLATIN. [Concomitant]
     Active Substance: CARBOPLATIN
  4. TAXOTERE [Suspect]
     Active Substance: DOCETAXEL
     Indication: BREAST CANCER
     Dosage: 155 MG,Q3W
     Route: 042
     Dates: start: 20120411, end: 20120411

REACTIONS (1)
  - Alopecia [Not Recovered/Not Resolved]

NARRATIVE: CASE EVENT DATE: 201204
